FAERS Safety Report 6333147-3 (Version None)
Quarter: 2009Q3

REPORT INFORMATION
  Report Type: 
  Country: None (occurrence: None)
  Receive Date: 20090828
  Receipt Date: 20090824
  Transmission Date: 20100115
  Serious: Yes (Other)
  Sender: FDA-Public Use
  Company Number: US-MERCK-0908USA04095

PATIENT
  Sex: Female

DRUGS (1)
  1. FOSAMAX [Suspect]
     Route: 065

REACTIONS (3)
  - ARTHRALGIA [None]
  - ARTHRITIS [None]
  - SYSTEMIC LUPUS ERYTHEMATOSUS [None]
